FAERS Safety Report 4537192-X (Version None)
Quarter: 2004Q4

REPORT INFORMATION
  Report Type: 
  Country: None (occurrence: None)
  Receive Date: 20041221
  Receipt Date: 20041208
  Transmission Date: 20050328
  Serious: Yes (Other)
  Sender: FDA-Public Use
  Company Number: 2004-00907

PATIENT
  Age: 81 Year
  Sex: Female

DRUGS (9)
  1. VELCADE [Suspect]
     Indication: MULTIPLE MYELOMA
     Dosage: 1.30 MG/M2, IV BOLUS
     Route: 040
     Dates: start: 20040301, end: 20041101
  2. OXYCONTIN [Concomitant]
  3. VITAMIN E [Concomitant]
  4. VITAMIN C (ASCORBIC ACID) [Concomitant]
  5. OCUPRESS [Concomitant]
  6. XALATAN [Concomitant]
  7. SENOKOT [Concomitant]
  8. MEGACE [Concomitant]
  9. AMITRIPTYLINE HCL [Concomitant]

REACTIONS (2)
  - EJECTION FRACTION DECREASED [None]
  - ORTHOPNOEA [None]
